FAERS Safety Report 7943528 (Version 7)
Quarter: 2013Q1

REPORT INFORMATION
  Report Type: Spontaneous
  Country: US (occurrence: US)
  Receive Date: 20110513
  Receipt Date: 20130306
  Transmission Date: 20140127
  Serious: No
  Sender: FDA-Public Use
  Company Number: US-ELI_LILLY_AND_COMPANY-US201104006867

PATIENT
  Age: 66 Year
  Sex: Male

DRUGS (11)
  1. FORTEO [Suspect]
     Indication: OSTEOPOROSIS
     Dosage: 20 UG, QD
     Route: 065
  2. FORTEO [Suspect]
     Dosage: 20 UG, QD
     Route: 065
  3. FORTEO [Suspect]
     Dosage: 20 UG, QD
     Route: 065
  4. FORTEO [Suspect]
     Dosage: 20 UG, QD
     Route: 065
  5. FORTEO [Suspect]
     Dosage: 20 UG, QD
     Route: 065
  6. FORTEO [Suspect]
     Dosage: 20 UG, QOD
     Route: 065
  7. FORTEO [Suspect]
     Dosage: 20 UG, QOD
  8. FORTEO [Suspect]
     Dosage: 20 UG, QOD
  9. ANTIBIOTICS [Concomitant]
  10. PROTONIX ^PHARMACIA^ [Concomitant]
     Indication: EROSIVE OESOPHAGITIS
  11. SUCRALFATE [Concomitant]
     Indication: EROSIVE OESOPHAGITIS

REACTIONS (24)
  - Memory impairment [Unknown]
  - Intervertebral disc protrusion [Unknown]
  - Blood urine present [Unknown]
  - Procedural pain [Unknown]
  - Rectal haemorrhage [Unknown]
  - Biopsy prostate [Unknown]
  - Back pain [Unknown]
  - Back disorder [Unknown]
  - Haemorrhoids [Unknown]
  - Abdominal pain upper [Unknown]
  - Pain in extremity [Unknown]
  - Haematochezia [Unknown]
  - Faeces hard [Unknown]
  - Erosive oesophagitis [Unknown]
  - Stress [Unknown]
  - Muscular weakness [Unknown]
  - Dyspepsia [Unknown]
  - Constipation [Unknown]
  - Blood calcium increased [Recovered/Resolved]
  - Drug prescribing error [Unknown]
  - Intentional drug misuse [Unknown]
  - Constipation [Unknown]
  - Blood calcium increased [Unknown]
  - Feeling abnormal [Unknown]
